FAERS Safety Report 5932467-1 (Version None)
Quarter: 2008Q4

REPORT INFORMATION
  Report Type: 
  Country: None (occurrence: None)
  Receive Date: 20081028
  Receipt Date: 20081022
  Transmission Date: 20090506
  Serious: Yes (Other)
  Sender: FDA-Public Use
  Company Number: US-ASTRAZENECA-2008UW23572

PATIENT
  Age: 57 Year
  Sex: Female
  Weight: 50.3 kg

DRUGS (4)
  1. CRESTOR [Suspect]
     Indication: BLOOD CHOLESTEROL INCREASED
     Dosage: 5 MG (1/2 TABLET MONDAYS AND THURSDAYS)
     Route: 048
  2. PLAVIX [Concomitant]
  3. NORVASC [Concomitant]
  4. ASPIRIN [Concomitant]

REACTIONS (1)
  - ARTERIOSPASM CORONARY [None]
